FAERS Safety Report 20189350 (Version 8)
Quarter: 2022Q1

REPORT INFORMATION
  Report Type: Report from Study
  Country: DE (occurrence: None)
  Receive Date: 20211215
  Receipt Date: 20220305
  Transmission Date: 20220423
  Serious: Yes (Hospitalization)
  Sender: FDA-Public Use
  Company Number: DE-ROCHE-2966671

PATIENT
  Age: 64 Year
  Sex: Male
  Weight: 80.3 kg

DRUGS (18)
  1. ATEZOLIZUMAB [Suspect]
     Active Substance: ATEZOLIZUMAB
     Indication: Malignant neoplasm of unknown primary site
     Route: 041
     Dates: start: 20211103
  2. CARBOPLATIN [Suspect]
     Active Substance: CARBOPLATIN
     Indication: Malignant neoplasm of unknown primary site
     Dosage: ON 05/OCT/2021, HE RECEIVED MOST RECENT DOSE OF DRUG PRIOR TO ADVERSE EVENT.
     Route: 042
     Dates: start: 20210818
  3. CARBOPLATIN [Suspect]
     Active Substance: CARBOPLATIN
     Route: 042
     Dates: start: 20211103
  4. PACLITAXEL [Suspect]
     Active Substance: PACLITAXEL
     Indication: Malignant neoplasm of unknown primary site
     Dosage: ON 05/OCT/2021, HE RECEIVED MOST RECENT DOSE OF DRUG PRIOR TO ADVERSE EVENT.
     Route: 042
     Dates: start: 20210818
  5. PACLITAXEL [Suspect]
     Active Substance: PACLITAXEL
     Route: 042
     Dates: start: 20211103
  6. METAMIZOLE SODIUM [Suspect]
     Active Substance: METAMIZOLE SODIUM
     Indication: Malignant neoplasm of unknown primary site
     Route: 065
     Dates: start: 20210706, end: 20211126
  7. APIXABAN [Concomitant]
     Active Substance: APIXABAN
     Route: 048
  8. LERCANIDIPINE [Concomitant]
     Active Substance: LERCANIDIPINE
     Route: 048
  9. METOPROLOL SUCCINATE [Concomitant]
     Active Substance: METOPROLOL SUCCINATE
     Route: 048
  10. RAMIPRIL [Concomitant]
     Active Substance: RAMIPRIL
     Route: 048
     Dates: end: 20211123
  11. RAMIPRIL [Concomitant]
     Active Substance: RAMIPRIL
     Route: 048
     Dates: start: 20211124
  12. OXYCODONE [Concomitant]
     Active Substance: OXYCODONE
     Dosage: 5/2.5 MG
     Route: 048
     Dates: start: 20210809, end: 20211123
  13. NALOXONE HYDROCHLORIDE\OXYCODONE HYDROCHLORIDE [Concomitant]
     Active Substance: NALOXONE HYDROCHLORIDE\OXYCODONE HYDROCHLORIDE
     Route: 048
     Dates: start: 20211124
  14. NALOXONE HYDROCHLORIDE\OXYCODONE HYDROCHLORIDE [Concomitant]
     Active Substance: NALOXONE HYDROCHLORIDE\OXYCODONE HYDROCHLORIDE
     Route: 048
     Dates: start: 20211213, end: 20211213
  15. PANTOPRAZOLE [Concomitant]
     Active Substance: PANTOPRAZOLE
     Route: 048
     Dates: start: 20210802
  16. TEMAZEPAM [Concomitant]
     Active Substance: TEMAZEPAM
     Route: 048
     Dates: start: 20211126, end: 20211217
  17. AMPHOTERICIN B [Concomitant]
     Active Substance: AMPHOTERICIN B
     Indication: Oral candidiasis
     Route: 042
     Dates: start: 20211202, end: 20211214
  18. ACYCLOVIR [Concomitant]
     Active Substance: ACYCLOVIR
     Indication: Oral herpes
     Route: 042
     Dates: start: 20211203, end: 20211208

REACTIONS (2)
  - Agranulocytosis [Recovered/Resolved]
  - Abscess jaw [Recovered/Resolved]

NARRATIVE: CASE EVENT DATE: 20211123
